FAERS Safety Report 6883571-5 (Version None)
Quarter: 2010Q3

REPORT INFORMATION
  Report Type: 
  Country: None (occurrence: None)
  Receive Date: 20100729
  Receipt Date: 20100719
  Transmission Date: 20110219
  Serious: Yes (Death)
  Sender: FDA-Public Use
  Company Number: PH-BAXTER-2010BH019311

PATIENT
  Sex: Female

DRUGS (1)
  1. DIANEAL [Suspect]
     Indication: PERITONEAL DIALYSIS
     Route: 033
     Dates: start: 20090911

REACTIONS (3)
  - CARDIO-RESPIRATORY ARREST [None]
  - DIABETES MELLITUS [None]
  - RENAL FAILURE [None]
